FAERS Safety Report 4618793-7 (Version None)
Quarter: 2005Q1

REPORT INFORMATION
  Report Type: 
  Country: None (occurrence: None)
  Receive Date: 20050323
  Receipt Date: 20040910
  Transmission Date: 20050727
  Serious: Yes (Death, Life-Threatening, Hospitalization)
  Sender: FDA-Public Use
  Company Number: F01200402772

PATIENT
  Age: 69 Year
  Sex: Female
  Weight: 58.1 kg

DRUGS (22)
  1. OXALIPLATIN - SOLUTION - 130 MG/M2 [Suspect]
     Indication: NON-SMALL CELL LUNG CANCER
     Dosage: 130 MG/M2 Q3W-INTRAVENOUS NOS
     Route: 042
     Dates: start: 20040812, end: 20040812
  2. GEMCITABINE-SOLUTION-750 MG/M2 [Suspect]
     Dosage: 750 MG/M2 Q3W-INTRAVENOUS NOS
     Route: 042
     Dates: start: 20040812, end: 20040812
  3. MORPHINE SULFATE [Concomitant]
  4. CYCLOBENZAPRINE HCL [Concomitant]
  5. LEVOTHYROXINE SODIUM [Concomitant]
  6. ESTROGENS CONJUGATED [Concomitant]
  7. MEDROXYPROGESTERONE ACETATE [Concomitant]
  8. TRAZODONE HCL [Concomitant]
  9. CLONAZEPAM [Concomitant]
  10. PALONOSETRON [Concomitant]
  11. DEXAMETHASONE [Concomitant]
  12. DIPHENHYDRAMINE HCL [Concomitant]
  13. GABAPENTIN [Concomitant]
  14. LORAZEPAM [Concomitant]
  15. ONDANSETRON HYDROCHLORIDE [Concomitant]
  16. PROCHLORPERAZINE EDISYLATE [Concomitant]
  17. LOPERAMIDE HYDROCHLORIDE [Concomitant]
  18. SERTRALINE HYDROCHLORIDE [Concomitant]
  19. FOLIC ACID [Concomitant]
  20. DARBEPOETIN ALFA [Concomitant]
  21. PLATELETS [Concomitant]
  22. LEVOFLOXACIN [Concomitant]

REACTIONS (14)
  - ANAEMIA [None]
  - CONDUCTION DISORDER [None]
  - DYSPNOEA EXACERBATED [None]
  - ELECTROCARDIOGRAM ABNORMAL [None]
  - HAEMOPTYSIS [None]
  - HYPERSENSITIVITY [None]
  - HYPOKALAEMIA [None]
  - HYPOXIA [None]
  - INFECTION [None]
  - INFLAMMATION [None]
  - PNEUMOCYSTIS JIROVECI INFECTION [None]
  - PNEUMONITIS [None]
  - THROMBOCYTOPENIA [None]
  - VIRAL INFECTION [None]
